FAERS Safety Report 9552093 (Version 1)
Quarter: 2013Q3

REPORT INFORMATION
  Report Type: Spontaneous
  Country: US (occurrence: None)
  Receive Date: 20130724
  Receipt Date: 20130724
  Transmission Date: 20140515
  Serious: Yes (Other)
  Sender: FDA-Public Use
  Company Number: PHEH2012US014177

PATIENT
  Sex: Male

DRUGS (1)
  1. GLEEVEC (IMATINIB) UNKNOWN [Suspect]
     Indication: CHRONIC MYELOID LEUKAEMIA
     Route: 048

REACTIONS (6)
  - Pancreatitis [None]
  - Blood creatinine increased [None]
  - Nausea [None]
  - Vomiting [None]
  - Hyperhidrosis [None]
  - Arthropod bite [None]
